FAERS Safety Report 11231947 (Version 1)
Quarter: 2015Q3

REPORT INFORMATION
  Report Type: Spontaneous
  Country: US (occurrence: US)
  Receive Date: 20150701
  Receipt Date: 20150701
  Transmission Date: 20151125
  Serious: No
  Sender: FDA-Public Use
  Company Number: US-009507513-1506USA001537

PATIENT
  Sex: Female

DRUGS (1)
  1. NUVARING [Suspect]
     Active Substance: ETHINYL ESTRADIOL\ETONOGESTREL
     Dosage: 28 DAYS IN
     Route: 067
     Dates: end: 201505

REACTIONS (3)
  - Polymenorrhoea [Unknown]
  - Incorrect drug administration duration [Unknown]
  - Fungal infection [Unknown]

NARRATIVE: CASE EVENT DATE: 201505
